FAERS Safety Report 11694503 (Version 1)
Quarter: 2015Q4

REPORT INFORMATION
  Report Type: Spontaneous
  Country: CN (occurrence: CN)
  Receive Date: 20151103
  Receipt Date: 20151103
  Transmission Date: 20160304
  Serious: Yes (Death, Other)
  Sender: FDA-Public Use
  Company Number: CN-BAYER-2015-458699

PATIENT
  Age: 17 Year
  Sex: Male

DRUGS (1)
  1. LORATADINE. [Suspect]
     Active Substance: LORATADINE
     Indication: URTICARIA

REACTIONS (3)
  - Coma [None]
  - Multi-organ failure [Fatal]
  - Staphylococcal infection [Fatal]
